FAERS Safety Report 8844800 (Version 2)
Quarter: 2012Q4

REPORT INFORMATION
  Report Type: Spontaneous
  Country: US (occurrence: None)
  Receive Date: 20120928
  Receipt Date: 20121002
  Transmission Date: 20130627
  Serious: Yes (Hospitalization)
  Sender: FDA-Public Use
  Company Number: RB-40198-2012

PATIENT
  Age: 49 Year
  Sex: Male

DRUGS (7)
  1. SUBOXONE [Suspect]
     Indication: PRODUCT USED FOR UNKNOWN INDICATION
     Dosage: Dosing details unknown Unknown
     Route: 060
     Dates: end: 2009
  2. SUBOXONE [Suspect]
     Indication: DRUG DEPENDENCE
     Dosage: Dosing details unknown Unknown
     Route: 060
     Dates: end: 2009
  3. SUBOXONE [Suspect]
     Indication: PRODUCT USED FOR UNKNOWN INDICATION
     Dates: end: 201205
  4. SUBOXONE [Suspect]
     Indication: DRUG DEPENDENCE
     Dates: end: 201205
  5. SUBOXONE [Suspect]
     Indication: PRODUCT USED FOR UNKNOWN INDICATION
     Dosage: Dosing details unknown Unknown
     Route: 060
  6. SUBOXONE [Suspect]
     Indication: DRUG DEPENDENCE
     Dosage: Dosing details unknown Unknown
     Route: 060
  7. KLONOPIN [Concomitant]

REACTIONS (4)
  - Drug withdrawal syndrome [None]
  - Glossodynia [None]
  - Oral discomfort [None]
  - Drug dependence [None]
